FAERS Safety Report 5726876-3 (Version None)
Quarter: 2008Q2

REPORT INFORMATION
  Report Type: 
  Country: None (occurrence: None)
  Receive Date: 20080502
  Receipt Date: 20080430
  Transmission Date: 20081010
  Serious: Yes (Death, Other)
  Sender: FDA-Public Use
  Company Number: GB-BAYER-200810315BNE

PATIENT
  Sex: Female

DRUGS (2)
  1. MABCAMPATH [Suspect]
     Indication: T-CELL CHRONIC LYMPHOCYTIC LEUKAEMIA
     Route: 058
  2. GANCICLOVIR [Concomitant]
     Indication: CYTOMEGALOVIRUS INFECTION

REACTIONS (4)
  - BONE MARROW FAILURE [None]
  - CYTOMEGALOVIRUS INFECTION [None]
  - INFECTION [None]
  - PANCYTOPENIA [None]
